FAERS Safety Report 12239050 (Version 3)
Quarter: 2016Q3

REPORT INFORMATION
  Report Type: Spontaneous
  Country: US (occurrence: US)
  Receive Date: 20160405
  Receipt Date: 20160706
  Transmission Date: 20161109
  Serious: No
  Sender: FDA-Public Use
  Company Number: US-ACTELION PHARMACEUTICALS US, INC.-A-US2016-133618

PATIENT
  Age: 69 Year
  Sex: Female
  Weight: 65.8 kg

DRUGS (4)
  1. OPSUMIT [Suspect]
     Active Substance: MACITENTAN
     Indication: PULMONARY HYPERTENSION
     Dosage: 10 MG, QD
     Route: 048
     Dates: start: 20140305
  2. COUMADIN [Concomitant]
     Active Substance: WARFARIN SODIUM
  3. REMODULIN [Suspect]
     Active Substance: TREPROSTINIL
     Indication: PULMONARY HYPERTENSION
     Dosage: 120 NG/KG, UNK
     Route: 058
     Dates: start: 20090903
  4. RIOCIGUAT [Suspect]
     Active Substance: RIOCIGUAT
     Indication: PULMONARY HYPERTENSION
     Dosage: UNK
     Route: 065
     Dates: start: 201505

REACTIONS (2)
  - Anticoagulation drug level decreased [Not Recovered/Not Resolved]
  - International normalised ratio fluctuation [Not Recovered/Not Resolved]

NARRATIVE: CASE EVENT DATE: 201511
